FAERS Safety Report 25600498 (Version 2)
Quarter: 2025Q3

REPORT INFORMATION
  Report Type: Spontaneous
  Country: PY (occurrence: PY)
  Receive Date: 20250724
  Receipt Date: 20250808
  Transmission Date: 20251021
  Serious: Yes (Life-Threatening, Hospitalization, Other)
  Sender: BRISTOL-MYERS SQUIBB COMPANY
  Company Number: PY-BRISTOL-MYERS SQUIBB COMPANY-2025-101453

PATIENT
  Age: 21 Year
  Sex: Female
  Weight: 50 kg

DRUGS (1)
  1. SPRYCEL [Suspect]
     Active Substance: DASATINIB
     Indication: Chronic myeloid leukaemia
     Dosage: 2 X 50MG TABLETS
     Route: 048

REACTIONS (5)
  - Pneumonia influenzal [Unknown]
  - Live birth [Unknown]
  - Maternal exposure during pregnancy [Recovered/Resolved]
  - Acute respiratory failure [Unknown]
  - Pregnancy with contraceptive device [Unknown]

NARRATIVE: CASE EVENT DATE: 20250101
